FAERS Safety Report 8874482 (Version 1)
Quarter: 2012Q4

REPORT INFORMATION
  Report Type: 
  Country: US (occurrence: US)
  Receive Date: 20121030
  Receipt Date: 20121030
  Transmission Date: 20130627
  Serious: Yes (Other)
  Sender: FDA-Public Use
  Company Number: US-009507513-1210USA009361

PATIENT
  Age: 49 Year
  Sex: Female

DRUGS (1)
  1. VICTRELIS [Suspect]
     Indication: HEPATITIS C
     Dosage: 800 mg, tid
     Route: 048
     Dates: start: 20120531, end: 20121012

REACTIONS (3)
  - Sebaceous glands overactivity [Unknown]
  - Rash [Unknown]
  - Skin discolouration [Unknown]
